FAERS Safety Report 11334675 (Version 1)
Quarter: 2015Q3

REPORT INFORMATION
  Report Type: Spontaneous
  Country: US (occurrence: US)
  Receive Date: 20150804
  Receipt Date: 20150804
  Transmission Date: 20151125
  Serious: No
  Sender: FDA-Public Use
  Company Number: US-TEVA-541748USA

PATIENT

DRUGS (1)
  1. VENLAFAXINE [Suspect]
     Active Substance: VENLAFAXINE HYDROCHLORIDE

REACTIONS (5)
  - Job dissatisfaction [Unknown]
  - Adverse event [Unknown]
  - Drug effect decreased [Unknown]
  - Therapeutic product ineffective [Unknown]
  - Anxiety [Unknown]
